FAERS Safety Report 7967725-2 (Version None)
Quarter: 2011Q4

REPORT INFORMATION
  Report Type: 
  Country: None (occurrence: None)
  Receive Date: 20111209
  Receipt Date: 20111209
  Transmission Date: 20120403
  Serious: Yes (Life-Threatening, Other)
  Sender: FDA-Public Use
  Company Number: None

PATIENT

DRUGS (1)
  1. CIPROFLOXACIN [Suspect]
     Indication: CYSTITIS
     Dosage: NOT KNOWN, APPROX. DAYS BELOW
     Route: 048
     Dates: start: 20110409, end: 20110417

REACTIONS (4)
  - JOINT CREPITATION [None]
  - TENDON INJURY [None]
  - GAIT DISTURBANCE [None]
  - SUICIDAL IDEATION [None]
